FAERS Safety Report 7010742-X (Version None)
Quarter: 2010Q3

REPORT INFORMATION
  Report Type: 
  Country: None (occurrence: None)
  Receive Date: 20100923
  Receipt Date: 20100916
  Transmission Date: 20110219
  Serious: Yes (Death, Other)
  Sender: FDA-Public Use
  Company Number: DE-AMGEN-QUU429994

PATIENT
  Sex: Female
  Weight: 59 kg

DRUGS (2)
  1. VECTIBIX [Suspect]
     Indication: COLORECTAL CANCER
     Route: 042
     Dates: start: 20080601, end: 20090306
  2. IRINOTECAN HCL [Concomitant]
     Route: 042
     Dates: start: 20040201, end: 20090401

REACTIONS (7)
  - MALIGNANT NEOPLASM PROGRESSION [None]
  - PHOTOSENSITIVITY REACTION [None]
  - RASH [None]
  - SKIN REACTION [None]
  - SKIN TOXICITY [None]
  - SUBILEUS [None]
  - THORACIC VERTEBRAL FRACTURE [None]
